FAERS Safety Report 10008851 (Version 2)
Quarter: 2014Q1

REPORT INFORMATION
  Report Type: Spontaneous
  Country: US (occurrence: US)
  Receive Date: 20140313
  Receipt Date: 20140321
  Transmission Date: 20141002
  Serious: Yes (Other)
  Sender: FDA-Public Use
  Company Number: CHPA2014US003645

PATIENT
  Age: 88 Year
  Sex: Male

DRUGS (4)
  1. IBUPROFEN [Suspect]
     Indication: ARTHRALGIA
     Dosage: 800 MG, BID
     Route: 065
     Dates: end: 2013
  2. IBUPROFEN [Suspect]
     Indication: OFF LABEL USE
  3. MOTRIN [Suspect]
     Dosage: UNK
     Route: 065
  4. VOLTAREN//DICLOFENAC [Concomitant]
     Route: 065

REACTIONS (2)
  - Renal disorder [Not Recovered/Not Resolved]
  - Incorrect dose administered [Unknown]
